FAERS Safety Report 14494882 (Version 1)
Quarter: 2018Q1

REPORT INFORMATION
  Report Type: Spontaneous
  Country: JP (occurrence: JP)
  Receive Date: 20180206
  Receipt Date: 20180206
  Transmission Date: 20180509
  Serious: Yes (Hospitalization, Other)
  Sender: FDA-Public Use
  Company Number: JP-MYLANLABS-2018M1007369

PATIENT
  Age: 69 Year
  Sex: Male

DRUGS (4)
  1. LANSOPRAZOLE. [Suspect]
     Active Substance: LANSOPRAZOLE
     Indication: HAEMORRHAGE PROPHYLAXIS
     Dosage: 30 MG/DAY
     Route: 065
  2. INSULIN [Concomitant]
     Active Substance: INSULIN NOS
     Indication: DIABETES MELLITUS
     Route: 065
  3. ASPIRIN (E.C.) [Concomitant]
     Active Substance: ASPIRIN
     Indication: ANTIPLATELET THERAPY
     Route: 065
  4. CLOPIDOGREL [Concomitant]
     Active Substance: CLOPIDOGREL BISULFATE
     Indication: ANTIPLATELET THERAPY
     Route: 065

REACTIONS (5)
  - Dehydration [Recovering/Resolving]
  - Hypoalbuminaemia [Recovering/Resolving]
  - Colitis microscopic [Recovering/Resolving]
  - Hyponatraemia [Recovering/Resolving]
  - Protein-losing gastroenteropathy [Recovering/Resolving]
